FAERS Safety Report 12809705 (Version 2)
Quarter: 2016Q4

REPORT INFORMATION
  Report Type: Spontaneous
  Country: GR (occurrence: GR)
  Receive Date: 20161005
  Receipt Date: 20161011
  Transmission Date: 20170207
  Serious: Yes (Other)
  Sender: FDA-Public Use
  Company Number: GR-ROCHE-1837973

PATIENT
  Age: 78 Year
  Sex: Male

DRUGS (10)
  1. OBINUTUZUMAB [Suspect]
     Active Substance: OBINUTUZUMAB
     Indication: SPLENOMEGALY
     Dosage: THE INFUSION RATE WAS 25MG/HOUR
     Route: 042
     Dates: start: 201601
  2. OBINUTUZUMAB [Suspect]
     Active Substance: OBINUTUZUMAB
     Indication: WHITE BLOOD CELL COUNT INCREASED
  3. CHLORAMBUCIL [Suspect]
     Active Substance: CHLORAMBUCIL
     Indication: WHITE BLOOD CELL COUNT INCREASED
  4. PREZOLON [Concomitant]
     Active Substance: PREDNISOLONE
     Route: 065
  5. OBINUTUZUMAB [Suspect]
     Active Substance: OBINUTUZUMAB
     Indication: CHRONIC LYMPHOCYTIC LEUKAEMIA
  6. CHLORAMBUCIL [Suspect]
     Active Substance: CHLORAMBUCIL
     Indication: SPLENOMEGALY
     Route: 065
  7. CHLORAMBUCIL [Suspect]
     Active Substance: CHLORAMBUCIL
     Indication: CHRONIC LYMPHOCYTIC LEUKAEMIA
  8. PARACETAMOL [Concomitant]
     Active Substance: ACETAMINOPHEN
  9. ALLOPURINOL. [Concomitant]
     Active Substance: ALLOPURINOL
     Dosage: 5 DAYS
     Route: 065
  10. FENISTIL (GREECE) [Concomitant]

REACTIONS (6)
  - Tachycardia [Recovered/Resolved]
  - Tachypnoea [Unknown]
  - Dyspnoea [Unknown]
  - Hypotension [Unknown]
  - Rash generalised [Recovered/Resolved]
  - Bronchospasm [Unknown]
